FAERS Safety Report 20439052 (Version 1)
Quarter: 2022Q1

REPORT INFORMATION
  Report Type: Spontaneous
  Country: US (occurrence: US)
  Receive Date: 20220207
  Receipt Date: 20220207
  Transmission Date: 20220424
  Serious: No
  Sender: FDA-Public Use
  Company Number: US-BAYER-2022A019101

PATIENT
  Age: 3 Year
  Sex: Male

DRUGS (1)
  1. KOGENATE FS [Suspect]
     Active Substance: ANTIHEMOPHILIC FACTOR, HUMAN RECOMBINANT
     Dosage: 273 IU

REACTIONS (2)
  - Rhinorrhoea [None]
  - Nasopharyngitis [None]

NARRATIVE: CASE EVENT DATE: 20220130
